FAERS Safety Report 12741454 (Version 2)
Quarter: 2016Q3

REPORT INFORMATION
  Report Type: Other
  Country: IT (occurrence: IT)
  Receive Date: 20160914
  Receipt Date: 20160921
  Transmission Date: 20161109
  Serious: Yes (Other)
  Sender: FDA-Public Use
  Company Number: IT-LUPIN PHARMACEUTICALS INC.-2016-03908

PATIENT
  Age: 86 Year
  Sex: Male

DRUGS (7)
  1. TARCEVA [Concomitant]
     Active Substance: ERLOTINIB HYDROCHLORIDE
     Indication: PRODUCT USED FOR UNKNOWN INDICATION
     Dosage: 100 MG COMPRESSE RIVESTITE CON FILM
     Route: 065
  2. FOLINA [Concomitant]
     Active Substance: FOLIC ACID
     Indication: PRODUCT USED FOR UNKNOWN INDICATION
     Dosage: 5 MG
     Route: 065
  3. ESOMEPRAZOLE SODIUM. [Concomitant]
     Active Substance: ESOMEPRAZOLE SODIUM
     Indication: PRODUCT USED FOR UNKNOWN INDICATION
     Route: 065
  4. TIKLID [Concomitant]
     Active Substance: TICLOPIDINE HYDROCHLORIDE
     Indication: PRODUCT USED FOR UNKNOWN INDICATION
     Dosage: 250 MG COMPRESSE RIVESTITE
     Route: 065
  5. LEVETIRACETAM. [Suspect]
     Active Substance: LEVETIRACETAM
     Indication: PETIT MAL EPILEPSY
     Dosage: 1000 MG
     Route: 048
     Dates: start: 20160715, end: 20160730
  6. LEVETIRACETAM. [Suspect]
     Active Substance: LEVETIRACETAM
     Dosage: DOSE REDUCED BY HALF
     Route: 065
     Dates: end: 20160730
  7. DEURSIL [Concomitant]
     Active Substance: URSODIOL
     Indication: PRODUCT USED FOR UNKNOWN INDICATION
     Dosage: 300 MG
     Route: 065

REACTIONS (3)
  - Irritability [Recovering/Resolving]
  - Somnolence [Recovering/Resolving]
  - Product substitution issue [Unknown]

NARRATIVE: CASE EVENT DATE: 20160715
